FAERS Safety Report 7583258 (Version 2)
Quarter: 2024Q3

REPORT INFORMATION
  Report Type: Spontaneous
  Country: AT (occurrence: AT)
  Receive Date: 20100914
  Receipt Date: 20240801
  Transmission Date: 20241017
  Serious: Yes (Hospitalization, Other)
  Sender: RANBAXY
  Company Number: DE-RANBAXY-2010US-37916

PATIENT
  Age: 42 Year
  Sex: Male

DRUGS (3)
  1. PANTOPRAZOLE [Suspect]
     Active Substance: PANTOPRAZOLE
     Indication: Helicobacter infection
     Dosage: 40 MG, QD
     Route: 065
  2. AMOXICILLIN [Suspect]
     Active Substance: AMOXICILLIN
     Indication: Helicobacter infection
     Dosage: 1 G, BID
     Route: 065
  3. CLARITHROMYCIN [Suspect]
     Active Substance: CLARITHROMYCIN
     Indication: Helicobacter infection
     Dosage: 500 MG, BID
     Route: 065

REACTIONS (27)
  - Acute psychosis [Recovered/Resolved]
  - Agitation [Recovered/Resolved]
  - Anxiety [Recovered/Resolved]
  - Fear [Unknown]
  - Nervousness [Unknown]
  - Paranoia [Recovered/Resolved]
  - Personality disorder [Recovered/Resolved]
  - Seizure [Recovered/Resolved]
  - Confusional state [Recovered/Resolved]
  - Crying [Recovered/Resolved]
  - Euphoric mood [Unknown]
  - Nightmare [Recovered/Resolved]
  - Decreased appetite [Recovered/Resolved]
  - Thought insertion [Recovered/Resolved]
  - Hypercholesterolaemia [Unknown]
  - Thinking abnormal [Recovered/Resolved]
  - Hypervigilance [Unknown]
  - Memory impairment [Recovered/Resolved]
  - Insomnia [Recovered/Resolved]
  - Restlessness [Recovered/Resolved]
  - Amnestic disorder [Unknown]
  - Delusion [Recovered/Resolved]
  - Vomiting [Recovered/Resolved]
  - Grandiosity [Recovered/Resolved]
  - Bradyphrenia [Unknown]
  - Disorientation [Recovered/Resolved]
  - Delusional perception [Recovered/Resolved]
